FAERS Safety Report 18667119 (Version 7)
Quarter: 2021Q4

REPORT INFORMATION
  Report Type: Report from Study
  Country: IL (occurrence: IL)
  Receive Date: 20201228
  Receipt Date: 20211215
  Transmission Date: 20220303
  Serious: Yes (Hospitalization)
  Sender: FDA-Public Use
  Company Number: IL-ABBVIE-20K-082-3666620-00

PATIENT
  Age: 69 Year
  Sex: Male

DRUGS (3)
  1. CARBIDOPA\LEVODOPA [Suspect]
     Active Substance: CARBIDOPA\LEVODOPA
     Indication: Parkinson^s disease
     Dosage: MD: 11.0ML, CD: 3.7ML/HOUR, ED: 1.0ML, THERAPY DURATION REMAINS AT 16 HRS
     Route: 050
     Dates: start: 20140219
  2. CARBIDOPA\LEVODOPA [Suspect]
     Active Substance: CARBIDOPA\LEVODOPA
     Dosage: CURRENT: MORNING DOSE 11.0ML, CONTINUOUS DOSE 3.7ML/HOUR, EXTRA DOSE 1.0ML
     Route: 050
  3. CARBIDOPA\LEVODOPA [Suspect]
     Active Substance: CARBIDOPA\LEVODOPA
     Dosage: CURRENT: MD 11.0ML, CD: 3.7ML/HOUR, ED: 1.0ML, THERAPY DURATION (HRS) REMAINS AT 16
     Route: 050

REACTIONS (20)
  - Stoma site inflammation [Unknown]
  - Abdominal pain [Recovered/Resolved]
  - Frequent bowel movements [Unknown]
  - Hiccups [Unknown]
  - Constipation [Unknown]
  - Abdominal distension [Unknown]
  - Flatulence [Unknown]
  - Bezoar [Unknown]
  - Hallucination [Not Recovered/Not Resolved]
  - Device expulsion [Unknown]
  - Device dislocation [Unknown]
  - Device loosening [Unknown]
  - Mood altered [Unknown]
  - On and off phenomenon [Unknown]
  - Muscular weakness [Unknown]
  - Tremor [Unknown]
  - Therapeutic product effect incomplete [Unknown]
  - Faeces discoloured [Unknown]
  - Confusional state [Not Recovered/Not Resolved]
  - Product administered at inappropriate site [Not Recovered/Not Resolved]

NARRATIVE: CASE EVENT DATE: 20201118
